FAERS Safety Report 8197719-6 (Version None)
Quarter: 2012Q1

REPORT INFORMATION
  Report Type: 
  Country: None (occurrence: None)
  Receive Date: 20120309
  Receipt Date: 20120224
  Transmission Date: 20120608
  Serious: Yes (Other)
  Sender: FDA-Public Use
  Company Number: US-SANOFI-AVENTIS-2012SA014020

PATIENT
  Age: 50 Year
  Sex: Female

DRUGS (3)
  1. ATENOLOL AND CHLORTHALIDONE [Suspect]
     Route: 065
  2. ACETYLSALICYLIC ACID SRT [Suspect]
     Route: 065
  3. HEPARIN [Suspect]
     Route: 065

REACTIONS (5)
  - CEREBRAL INFARCTION [None]
  - APHASIA [None]
  - ARTERIAL HAEMORRHAGE [None]
  - HEMIPLEGIA [None]
  - THROMBOSIS IN DEVICE [None]
